FAERS Safety Report 8989315 (Version 1)
Quarter: 2012Q4

REPORT INFORMATION
  Report Type: Report from Study
  Country: ES (occurrence: ES)
  Receive Date: 20121227
  Receipt Date: 20121227
  Transmission Date: 20130627
  Serious: Yes (Hospitalization)
  Sender: FDA-Public Use
  Company Number: ES-009507513-1212ESP008933

PATIENT
  Age: 75 Year
  Sex: Female

DRUGS (2)
  1. EZETROL 10 MG COMPRIMIDOS [Suspect]
     Indication: HYPERLIPIDAEMIA
     Route: 048
     Dates: start: 2009, end: 20090913
  2. SIMVASTATIN [Interacting]
     Indication: HYPERLIPIDAEMIA
     Route: 048
     Dates: start: 2009, end: 20090913

REACTIONS (2)
  - Renal failure chronic [Recovered/Resolved]
  - Rhabdomyolysis [Recovered/Resolved]
